FAERS Safety Report 15493163 (Version 1)
Quarter: 2018Q4

REPORT INFORMATION
  Report Type: Spontaneous
  Country: US (occurrence: US)
  Receive Date: 20181004
  Receipt Date: 20181004
  Transmission Date: 20190205
  Serious: Yes (Other)
  Sender: FDA-Public Use
  Company Number: None

PATIENT
  Age: 64 Year
  Sex: Female
  Weight: 75.6 kg

DRUGS (1)
  1. LEVOFLOXACIN. [Suspect]
     Active Substance: LEVOFLOXACIN
     Indication: PERIRECTAL ABSCESS
     Route: 048
     Dates: start: 20180913, end: 20180918

REACTIONS (1)
  - Arthralgia [None]

NARRATIVE: CASE EVENT DATE: 20180917
